FAERS Safety Report 7661642-3 (Version None)
Quarter: 2011Q3

REPORT INFORMATION
  Report Type: 
  Country: None (occurrence: None)
  Receive Date: 20110805
  Receipt Date: 20101112
  Transmission Date: 20111222
  Serious: No
  Sender: FDA-Public Use
  Company Number: US-ABBOTT-10P-163-0685874-00

PATIENT
  Sex: Female
  Weight: 81.72 kg

DRUGS (11)
  1. VALIUM [Concomitant]
     Indication: INSOMNIA
  2. FISH OIL [Concomitant]
     Indication: PRODUCT USED FOR UNKNOWN INDICATION
  3. ASPIRIN [Concomitant]
     Indication: PRODUCT USED FOR UNKNOWN INDICATION
     Dosage: 1/2 HOUR BEFORE NIASPAN
  4. INDERAL [Concomitant]
     Indication: INSOMNIA
  5. NIASPAN [Suspect]
     Indication: BLOOD CHOLESTEROL INCREASED
     Dosage: EVERY NIGHT
     Dates: start: 20100901
  6. CALCIUM ACETATE [Concomitant]
     Indication: PRODUCT USED FOR UNKNOWN INDICATION
  7. PLAVIX [Concomitant]
     Indication: CORONARY ARTERIAL STENT INSERTION
  8. POTASSIUM [Concomitant]
     Indication: PRODUCT USED FOR UNKNOWN INDICATION
  9. LIPITOR [Concomitant]
     Indication: PRODUCT USED FOR UNKNOWN INDICATION
  10. UNKNOWN MEDICATION [Concomitant]
     Indication: HYPOTHYROIDISM
  11. PREMARIN [Concomitant]
     Indication: HOT FLUSH

REACTIONS (4)
  - PRURITUS [None]
  - OCULAR HYPERAEMIA [None]
  - PURPURA [None]
  - HEADACHE [None]
